FAERS Safety Report 21419517 (Version 2)
Quarter: 2022Q4

REPORT INFORMATION
  Report Type: Report from Study
  Country: JP (occurrence: JP)
  Receive Date: 20221006
  Receipt Date: 20221019
  Transmission Date: 20230113
  Serious: Yes (Hospitalization)
  Sender: FDA-Public Use
  Company Number: JP-SEATTLE GENETICS-2022SGN09243

PATIENT
  Age: 75 Year
  Sex: Male
  Weight: 66.4 kg

DRUGS (13)
  1. TUCATINIB [Suspect]
     Active Substance: TUCATINIB
     Indication: Gallbladder cancer
     Dosage: 250 MG, BID ON DAYS 1 TO 21 OF EACH 21-DAY CYCLE
     Route: 048
     Dates: start: 20220513
  2. TRASTUZUMAB [Suspect]
     Active Substance: TRASTUZUMAB
     Indication: Gallbladder cancer
     Dosage: 8 MG/KG ON DAY 1 OF CYCLE 1 AND 4
     Route: 042
     Dates: start: 20220513
  3. TRASTUZUMAB [Suspect]
     Active Substance: TRASTUZUMAB
     Dosage: 6 MG/KG ON DAY 1 OF EACH CYCLE
     Route: 042
  4. TRASTUZUMAB [Suspect]
     Active Substance: TRASTUZUMAB
     Dosage: 6 MG/KG, DAY 1 OF EACH CYCLE
     Route: 042
  5. TRASTUZUMAB [Suspect]
     Active Substance: TRASTUZUMAB
     Dosage: 6 MG/KG, DAY 1 OF EACH CYCLE
     Route: 042
  6. AMLODIPINE BESYLATE [Concomitant]
     Active Substance: AMLODIPINE BESYLATE
     Indication: Hypertension
     Dosage: UNK
     Route: 048
  7. MAGNESIUM OXIDE [Concomitant]
     Active Substance: MAGNESIUM OXIDE
     Indication: Constipation
     Dosage: UNK
     Route: 048
  8. INSULIN LISPRO [Concomitant]
     Active Substance: INSULIN LISPRO
     Indication: Type 2 diabetes mellitus
     Dosage: UNK
     Route: 058
  9. ACETAMINOPHEN [Concomitant]
     Active Substance: ACETAMINOPHEN
     Indication: Back pain
     Dosage: UNK
     Route: 048
     Dates: start: 20220524
  10. LOPERAMIDE HYDROCHLORIDE [Concomitant]
     Active Substance: LOPERAMIDE HYDROCHLORIDE
     Indication: Diarrhoea
     Dosage: UNK
     Route: 048
     Dates: start: 20220528
  11. INSULIN GLARGINE [Concomitant]
     Active Substance: INSULIN GLARGINE
     Indication: Type 2 diabetes mellitus
     Dosage: UNK
     Route: 058
  12. ESOMEPRAZOLE MAGNESIUM [Concomitant]
     Active Substance: ESOMEPRAZOLE MAGNESIUM
     Indication: Prophylaxis
     Dosage: UNK
     Route: 048
  13. KETOPROFEN [Concomitant]
     Active Substance: KETOPROFEN
     Indication: Arthralgia
     Dosage: UNK
     Route: 061
     Dates: start: 20220909

REACTIONS (1)
  - Haemobilia [Not Recovered/Not Resolved]

NARRATIVE: CASE EVENT DATE: 20220928
